FAERS Safety Report 22195927 (Version 1)
Quarter: 2023Q2

REPORT INFORMATION
  Report Type: Spontaneous
  Country: AU (occurrence: AU)
  Receive Date: 20230411
  Receipt Date: 20230411
  Transmission Date: 20230721
  Serious: Yes (Other)
  Sender: FDA-Public Use
  Company Number: AU-JNJFOC-20230417417

PATIENT
  Age: 57 Year
  Sex: Male

DRUGS (1)
  1. EDURANT [Interacting]
     Active Substance: RILPIVIRINE HYDROCHLORIDE
     Indication: Product used for unknown indication
     Route: 048
     Dates: start: 20230214

REACTIONS (4)
  - Electrocardiogram QT prolonged [Unknown]
  - Drug resistance [Unknown]
  - Medication error [Unknown]
  - Drug interaction [Unknown]

NARRATIVE: CASE EVENT DATE: 20230101
